FAERS Safety Report 6137197-1 (Version None)
Quarter: 2009Q1

REPORT INFORMATION
  Report Type: 
  Country: None (occurrence: None)
  Receive Date: 20090330
  Receipt Date: 20090324
  Transmission Date: 20090719
  Serious: Yes (Other)
  Sender: FDA-Public Use
  Company Number: NL-SANOFI-SYNTHELABO-A01200903153

PATIENT
  Age: 68 Year
  Sex: Male

DRUGS (3)
  1. BEVACIZUMAB [Suspect]
     Dosage: UNK
     Route: 065
  2. CAPECITABINE [Suspect]
     Dosage: UNK
     Route: 065
  3. OXALIPLATIN [Suspect]
     Indication: COLON CANCER
     Dosage: UNK
     Route: 065

REACTIONS (1)
  - PORTAL VEIN PHLEBITIS [None]
